FAERS Safety Report 7985918-5 (Version None)
Quarter: 2011Q4

REPORT INFORMATION
  Report Type: 
  Country: None (occurrence: None)
  Receive Date: 20111216
  Receipt Date: 20111213
  Transmission Date: 20120403
  Serious: Yes (Hospitalization)
  Sender: FDA-Public Use
  Company Number: FR-PFIZER INC-2011302785

PATIENT
  Age: 68 Year
  Sex: Female

DRUGS (4)
  1. ALDACTONE [Suspect]
     Indication: NEPHRITIC SYNDROME
     Dosage: UNK
     Dates: start: 20110601, end: 20111123
  2. PREDNISOLONE [Concomitant]
     Indication: NEPHRITIC SYNDROME
     Dosage: UNK
     Dates: start: 20110601
  3. LASIX [Concomitant]
     Indication: NEPHRITIC SYNDROME
     Dosage: UNK
     Dates: start: 20110601
  4. RAMIPRIL [Concomitant]
     Indication: NEPHRITIC SYNDROME
     Dosage: UNK
     Dates: start: 20110601

REACTIONS (3)
  - RASH ERYTHEMATOUS [None]
  - ECZEMA [None]
  - RASH MACULO-PAPULAR [None]
